FAERS Safety Report 6865727-0 (Version None)
Quarter: 2010Q3

REPORT INFORMATION
  Report Type: 
  Country: None (occurrence: None)
  Receive Date: 20100721
  Receipt Date: 20080701
  Transmission Date: 20110219
  Serious: No
  Sender: FDA-Public Use
  Company Number: US-PFIZER INC-2008038949

PATIENT
  Age: 59 Year
  Sex: Female

DRUGS (8)
  1. CHANTIX [Suspect]
     Indication: SMOKING CESSATION THERAPY
     Dates: start: 20080101, end: 20080326
  2. MONTELUKAST SODIUM [Concomitant]
  3. SYNTHROID [Concomitant]
  4. LIPITOR [Concomitant]
  5. XANAX [Concomitant]
  6. OTHER RESPIRATORY SYSTEM PRODUCTS [Concomitant]
  7. ADVAIR DISKUS 100/50 [Concomitant]
  8. BENADRYL [Concomitant]

REACTIONS (4)
  - ANGER [None]
  - DEPRESSION [None]
  - MOOD SWINGS [None]
  - SERUM SEROTONIN INCREASED [None]
